FAERS Safety Report 9551475 (Version 1)
Quarter: 2013Q3

REPORT INFORMATION
  Report Type: Spontaneous
  Country: US (occurrence: None)
  Receive Date: 20130724
  Receipt Date: 20130724
  Transmission Date: 20140515
  Serious: Yes (Other)
  Sender: FDA-Public Use
  Company Number: PHEH2013US006938

PATIENT
  Age: 73 Year
  Sex: Female

DRUGS (10)
  1. AFINITOR (RAD) TABLET, 10MG [Suspect]
     Route: 048
  2. AROMASIN (EXEMESTANE) [Concomitant]
  3. LANTUS (INSULIN GLARGINE) INJECTION [Concomitant]
  4. LYRICA (PREGABALIN) CAPSULE) [Concomitant]
  5. ALLOPURINOL (ALLOPURINOL) TABLET [Concomitant]
  6. VALTREX (VALACICLOVIR HYDROCHLORIDE) TABLET [Concomitant]
  7. FENTANYL (FENTANYL) [Concomitant]
  8. PENTAZOCINE/APAP (PARACETAMOL, PENTAZOCINE HYDROCHLORIDE) TABLET, 650/25 MG [Concomitant]
  9. ROCALTROL (CALCITROL) CAPSULE [Concomitant]
  10. HYDROCHLOROTHIAZIDE (HYDROCHLOROTHIAZIDE) CAPSULE [Concomitant]

REACTIONS (2)
  - Anaemia [None]
  - Dizziness [None]
